FAERS Safety Report 5955997-5 (Version None)
Quarter: 2008Q4

REPORT INFORMATION
  Report Type: 
  Country: None (occurrence: None)
  Receive Date: 20081112
  Receipt Date: 20081031
  Transmission Date: 20090506
  Serious: Yes (Hospitalization, Other)
  Sender: FDA-Public Use
  Company Number: 2008-04142

PATIENT

DRUGS (3)
  1. VELCADE [Suspect]
     Indication: MULTIPLE MYELOMA
     Dosage: 8 MG
  2. DOXIL [Suspect]
     Indication: MULTIPLE MYELOMA
  3. DEXAMETHASONE [Concomitant]

REACTIONS (3)
  - ACCIDENTAL OVERDOSE [None]
  - NEUROPATHY PERIPHERAL [None]
  - TUMOUR LYSIS SYNDROME [None]
